FAERS Safety Report 6206992-2 (Version None)
Quarter: 2009Q2

REPORT INFORMATION
  Report Type: 
  Country: None (occurrence: None)
  Receive Date: 20090528
  Receipt Date: 20090518
  Transmission Date: 20091009
  Serious: Yes (Hospitalization, Disabling)
  Sender: FDA-Public Use
  Company Number: PHHY2009FR12767

PATIENT
  Sex: Male
  Weight: 69 kg

DRUGS (2)
  1. TASIGNA [Suspect]
     Indication: CHRONIC MYELOID LEUKAEMIA
     Dosage: 400 MG, BID
     Route: 048
     Dates: start: 20080530, end: 20090305
  2. SIMVASTATIN [Concomitant]
     Indication: HYPERCHOLESTEROLAEMIA
     Dosage: 10 MG, QD
     Dates: start: 20080530

REACTIONS (12)
  - ANGIOPLASTY [None]
  - BLOOD CREATINE PHOSPHOKINASE INCREASED [None]
  - BLOOD CREATINE PHOSPHOKINASE MB INCREASED [None]
  - CORONARY ARTERY STENOSIS [None]
  - ELECTROCARDIOGRAM ST SEGMENT DEPRESSION [None]
  - HEART RATE DECREASED [None]
  - MYOCARDIAL INFARCTION [None]
  - MYOGLOBIN BLOOD INCREASED [None]
  - PRURITUS [None]
  - STENT PLACEMENT [None]
  - TROPONIN I INCREASED [None]
  - TROPONIN T INCREASED [None]
